FAERS Safety Report 22065206 (Version 1)
Quarter: 2023Q1

REPORT INFORMATION
  Report Type: Spontaneous
  Country: US (occurrence: None)
  Receive Date: 20230304
  Receipt Date: 20230304
  Transmission Date: 20230417
  Serious: Yes (unspecified)
  Sender: FDA-Public Use
  Company Number: None

PATIENT
  Age: 68 Year
  Sex: Male
  Weight: 76.5 kg

DRUGS (5)
  1. NIVOLUMAB [Suspect]
     Active Substance: NIVOLUMAB
  2. ADVAIR HFA [Concomitant]
     Active Substance: FLUTICASONE PROPIONATE\SALMETEROL XINAFOATE
  3. c [Concomitant]
  4. D [Concomitant]
  5. ZINC [Concomitant]
     Active Substance: ZINC

REACTIONS (9)
  - Ocular hyperaemia [None]
  - Eye irritation [None]
  - Back pain [None]
  - Tremor [None]
  - Nasal obstruction [None]
  - Infusion related reaction [None]
  - Oral pain [None]
  - Ageusia [None]
  - Rash [None]

NARRATIVE: CASE EVENT DATE: 20230206
